FAERS Safety Report 9666277 (Version 2)
Quarter: 2013Q4

REPORT INFORMATION
  Report Type: Report from Study
  Country: US (occurrence: US)
  Receive Date: 20131104
  Receipt Date: 20131105
  Transmission Date: 20140711
  Serious: No
  Sender: FDA-Public Use
  Company Number: US-VERTEX PHARMACEUTICALS INC-2013-010830

PATIENT
  Sex: Female
  Weight: 61.3 kg

DRUGS (14)
  1. VX-770 [Suspect]
     Indication: CYSTIC FIBROSIS
     Dosage: 150 MG, BID
     Route: 048
     Dates: start: 20121127
  2. ANTIBIOTICS [Concomitant]
  3. ALBUTEROL [Concomitant]
  4. AQUADEKS [Concomitant]
  5. KLONOPIN [Concomitant]
  6. BENTYL [Concomitant]
  7. PULMOZYME [Concomitant]
  8. FLONASE [Concomitant]
  9. CAYSTON [Concomitant]
  10. TOBI [Concomitant]
  11. ZENPEP [Concomitant]
  12. PROTONIX [Concomitant]
  13. ORTHO TRI-CYCLEN [Concomitant]
  14. HYPERTONIC SALINE SOLUTION [Concomitant]

REACTIONS (1)
  - Gastritis [Recovered/Resolved]
